FAERS Safety Report 17508523 (Version 1)
Quarter: 2020Q1

REPORT INFORMATION
  Report Type: Report from Study
  Country: PK (occurrence: PK)
  Receive Date: 20200306
  Receipt Date: 20200306
  Transmission Date: 20200409
  Serious: Yes (Death)
  Sender: FDA-Public Use
  Company Number: NVSC2020PK062746

PATIENT
  Sex: Male
  Weight: 45 kg

DRUGS (1)
  1. TASIGNA [Suspect]
     Active Substance: NILOTINIB
     Indication: CHRONIC MYELOID LEUKAEMIA
     Dosage: 600 MG, QD (2 TABLETS OF 200 MG IN MORNING AND 1 TABLET IN EVENING)
     Route: 048
     Dates: start: 20120521

REACTIONS (1)
  - Cardio-respiratory arrest [Fatal]
